FAERS Safety Report 15843863 (Version 1)
Quarter: 2019Q1

REPORT INFORMATION
  Report Type: Spontaneous
  Country: US (occurrence: US)
  Receive Date: 20190118
  Receipt Date: 20190118
  Transmission Date: 20190417
  Serious: Yes (Disabling)
  Sender: FDA-Public Use
  Company Number: US-TARO-2019TAR00022

PATIENT
  Age: 92 Year
  Sex: Female
  Weight: 68.03 kg

DRUGS (4)
  1. UNSPECIFIED INSULIN [Concomitant]
     Active Substance: INSULIN NOS
  2. CLOTRIMAZOLE/BETAMETHASONE DIPROPIONATE CREAM USP 1%/0.05% [Suspect]
     Active Substance: BETAMETHASONE DIPROPIONATE\CLOTRIMAZOLE
     Indication: HYPERKERATOSIS
     Dosage: ^JUST A LITTLE^, 2X/DAY
     Route: 061
     Dates: start: 201901, end: 20190110
  3. UNSPECIFIED BLOOD PRESSURE MEDICATION [Concomitant]
     Active Substance: UNSPECIFIED INGREDIENT
  4. UNSPECIFIED WATER PILLS [Concomitant]
     Active Substance: UNSPECIFIED INGREDIENT

REACTIONS (6)
  - Pain in extremity [Recovering/Resolving]
  - Off label use [Recovered/Resolved]
  - Joint swelling [Recovering/Resolving]
  - Gait disturbance [Recovering/Resolving]
  - Gait inability [Recovering/Resolving]
  - Peripheral swelling [Recovering/Resolving]

NARRATIVE: CASE EVENT DATE: 201901
